FAERS Safety Report 6440560-2 (Version None)
Quarter: 2009Q4

REPORT INFORMATION
  Report Type: 
  Country: None (occurrence: None)
  Receive Date: 20091113
  Receipt Date: 20091105
  Transmission Date: 20100525
  Serious: Yes (Death)
  Sender: FDA-Public Use
  Company Number: AU-WATSON-2009-09540

PATIENT
  Age: 67 Year
  Sex: Female

DRUGS (1)
  1. COLCHICINE (WATSON LABORATORIES) [Suspect]
     Indication: GOUT
     Dosage: 1 MG, DAILY
     Route: 048

REACTIONS (8)
  - ABDOMINAL PAIN [None]
  - CARDIOGENIC SHOCK [None]
  - DIARRHOEA [None]
  - LIVER FUNCTION TEST NORMAL [None]
  - MULTI-ORGAN FAILURE [None]
  - PANCYTOPENIA [None]
  - RENAL FAILURE [None]
  - VOMITING [None]
